FAERS Safety Report 22238532 (Version 3)
Quarter: 2024Q1

REPORT INFORMATION
  Report Type: Spontaneous
  Country: US (occurrence: US)
  Receive Date: 20230421
  Receipt Date: 20240208
  Transmission Date: 20240410
  Serious: No
  Sender: FDA-Public Use
  Company Number: US-BRISTOL-MYERS SQUIBB COMPANY-2023-056958

PATIENT
  Age: 68 Year
  Sex: Female
  Weight: 79.38 kg

DRUGS (1)
  1. REVLIMID [Suspect]
     Active Substance: LENALIDOMIDE
     Indication: Plasma cell myeloma
     Dosage: 3 WKS ON,1 WK OFF
     Route: 048
     Dates: start: 20230201

REACTIONS (4)
  - Muscle spasms [Not Recovered/Not Resolved]
  - Peripheral swelling [Unknown]
  - Glossodynia [Unknown]
  - Tongue discolouration [Unknown]
